FAERS Safety Report 9720324 (Version 1)
Quarter: 2013Q4

REPORT INFORMATION
  Report Type: Spontaneous
  Country: GB (occurrence: GB)
  Receive Date: 20131129
  Receipt Date: 20131129
  Transmission Date: 20140711
  Serious: Yes (Hospitalization)
  Sender: FDA-Public Use
  Company Number: GB-MERCK-1311GBR011574

PATIENT
  Age: 61 Year
  Sex: Female
  Weight: 60.3 kg

DRUGS (10)
  1. DEXAMETHASONE [Suspect]
     Indication: PLASMA CELL MYELOMA
     Dosage: 200 MG, UNK
     Route: 048
     Dates: start: 201310
  2. DEXAMETHASONE [Suspect]
     Dosage: 40 MG, FROM DAY 1-4, 8-11, 15
     Route: 048
  3. VELCADE [Suspect]
     Indication: PLASMA CELL MYELOMA
     Dosage: 1 MG/M2, ON DAY 1, 4, 5, 11
  4. DOXORUBICIN [Suspect]
     Indication: PLASMA CELL MYELOMA
     Dosage: 9 MG/M2, ON DAY 1 AND 4
     Route: 042
  5. ACICLOVIR [Concomitant]
     Indication: CHEMOTHERAPY
     Dosage: 2 MG, 2 /1 DAYS
     Route: 048
     Dates: start: 20130918
  6. ALLOPURINOL [Concomitant]
     Dosage: 100 MG, 1 /1 DAYS
     Dates: start: 20130918
  7. BACTRIM [Concomitant]
     Indication: PROPHYLAXIS
     Dosage: 480 MG, 1 / 3 WEEKS
     Route: 048
     Dates: start: 20130918
  8. ENOXAPARIN SODIUM [Concomitant]
     Indication: PROPHYLAXIS
     Dosage: 20 MG, 1/1 DAYS
     Route: 058
  9. LENALIDOMIDE [Concomitant]
     Indication: CHEMOTHERAPY
     Dosage: 5 MG, 1 / 1 DAYS
     Route: 048
     Dates: start: 20131031
  10. RANITIDINE [Concomitant]
     Dosage: 150 MG, 2 / 1 DAYS
     Dates: start: 20130915

REACTIONS (3)
  - Hypercalcaemia [Unknown]
  - Upper respiratory tract infection [Unknown]
  - Drug ineffective [Unknown]
